FAERS Safety Report 12405942 (Version 2)
Quarter: 2016Q3

REPORT INFORMATION
  Report Type: Spontaneous
  Country: US (occurrence: US)
  Receive Date: 20160526
  Receipt Date: 20160707
  Transmission Date: 20161109
  Serious: Yes (Other)
  Sender: FDA-Public Use
  Company Number: US-CIPLA LTD.-2016US05951

PATIENT

DRUGS (3)
  1. ZIDOVUDINE. [Suspect]
     Active Substance: ZIDOVUDINE
     Dosage: 1 TOTAL DAILY DOSE
     Route: 064
     Dates: end: 20160405
  2. TENOFOVIR/EMTRICITABINE [Suspect]
     Active Substance: EMTRICITABINE\TENOFOVIR
     Dosage: 1 TOTAL DAILY DOSE
     Route: 064
     Dates: start: 20160505
  3. TIVICAY [Suspect]
     Active Substance: DOLUTEGRAVIR SODIUM
     Dosage: 1 TOTAL DAILY DOSE
     Route: 064
     Dates: start: 20160505

REACTIONS (3)
  - Pericardial effusion [Recovered/Resolved]
  - Mass [Recovered/Resolved]
  - Foetal exposure during pregnancy [Unknown]
